FAERS Safety Report 23346360 (Version 1)
Quarter: 2023Q4

REPORT INFORMATION
  Report Type: Spontaneous
  Country: GB (occurrence: GB)
  Receive Date: 20231228
  Receipt Date: 20231228
  Transmission Date: 20240110
  Serious: Yes (Other)
  Sender: FDA-Public Use
  Company Number: GB-BEH-2023166461

PATIENT
  Age: 56 Year
  Sex: Male
  Weight: 66.7 kg

DRUGS (1)
  1. HIZENTRA [Suspect]
     Active Substance: HUMAN IMMUNOGLOBULIN G
     Indication: Immunodeficiency common variable
     Dosage: 2 GRAM, QOD
     Route: 058
     Dates: start: 20231207, end: 20231207

REACTIONS (7)
  - Dizziness [Recovered/Resolved]
  - Tinnitus [Recovered/Resolved]
  - Vision blurred [Recovered/Resolved]
  - Pallor [Recovered/Resolved]
  - Hypotension [Recovered/Resolved]
  - Bradycardia [Recovered/Resolved]
  - Oxygen saturation decreased [Recovered/Resolved]

NARRATIVE: CASE EVENT DATE: 20231207
